FAERS Safety Report 24062627 (Version 2)
Quarter: 2024Q3

REPORT INFORMATION
  Report Type: Report from Study
  Country: US (occurrence: US)
  Receive Date: 20240708
  Receipt Date: 20240808
  Transmission Date: 20241017
  Serious: No
  Sender: ALEXION PHARMACEUTICALS
  Company Number: US-AstraZeneca-CH-00658761A

PATIENT
  Sex: Female

DRUGS (1)
  1. SOLIRIS [Suspect]
     Active Substance: ECULIZUMAB
     Indication: Product used for unknown indication
     Dosage: UNK
     Route: 065

REACTIONS (8)
  - Burning sensation [Unknown]
  - Feeling hot [Unknown]
  - Erythema [Unknown]
  - Headache [Unknown]
  - Swelling face [Unknown]
  - Eyelid ptosis [Unknown]
  - Visual impairment [Unknown]
  - Inflammation [Recovered/Resolved]
